FAERS Safety Report 22296534 (Version 1)
Quarter: 2023Q2

REPORT INFORMATION
  Report Type: Spontaneous
  Country: DE (occurrence: DE)
  Receive Date: 20230508
  Receipt Date: 20230508
  Transmission Date: 20230722
  Serious: Yes (Other)
  Sender: FDA-Public Use
  Company Number: DE-BIOMARINAP-DE-2023-150253

PATIENT

DRUGS (1)
  1. PALYNZIQ [Suspect]
     Active Substance: PEGVALIASE-PQPZ
     Indication: Phenylketonuria
     Route: 065

REACTIONS (8)
  - Hypersensitivity [Unknown]
  - Hypotonia [Unknown]
  - Tachycardia [Unknown]
  - Dyspnoea [Unknown]
  - Rash [Unknown]
  - Lip swelling [Unknown]
  - Peripheral swelling [Unknown]
  - Chest pain [Unknown]
